FAERS Safety Report 4351383-2 (Version None)
Quarter: 2004Q2

REPORT INFORMATION
  Report Type: 
  Country: None (occurrence: None)
  Receive Date: 20040430
  Receipt Date: 20040430
  Transmission Date: 20050107
  Serious: Yes (Hospitalization)
  Sender: FDA-Public Use
  Company Number: None

PATIENT
  Age: 81 Year
  Sex: Female
  Weight: 73 kg

DRUGS (7)
  1. COUMADIN [Suspect]
     Indication: ATRIAL FIBRILLATION
     Dosage: 5MG PO QHS
     Dates: start: 20041220
  2. DIGOXIN [Concomitant]
  3. KCL TAB [Concomitant]
  4. LEXAPRO [Concomitant]
  5. DILTIAZEM [Concomitant]
  6. HYDROCHLOROTHIAZIDE [Concomitant]
  7. PREVACID [Concomitant]

REACTIONS (5)
  - ABDOMINAL PAIN [None]
  - BLOOD URINE [None]
  - EPISTAXIS [None]
  - NAUSEA [None]
  - VOMITING [None]
